FAERS Safety Report 18262017 (Version 1)
Quarter: 2020Q3

REPORT INFORMATION
  Report Type: Spontaneous
  Country: CN (occurrence: CN)
  Receive Date: 20200914
  Receipt Date: 20200914
  Transmission Date: 20201103
  Serious: Yes (Hospitalization)
  Sender: FDA-Public Use
  Company Number: CN-EISAI MEDICAL RESEARCH-EC-2020-080134

PATIENT
  Age: 66 Year
  Sex: Female
  Weight: 46 kg

DRUGS (3)
  1. PALIPERIDONE. [Suspect]
     Active Substance: PALIPERIDONE
     Indication: MENTAL DISORDER
     Route: 048
     Dates: start: 20200811, end: 20200826
  2. DONEPEZIL. [Suspect]
     Active Substance: DONEPEZIL
     Indication: DEMENTIA ALZHEIMER^S TYPE
     Route: 048
     Dates: start: 20200811, end: 20200825
  3. DONEPEZIL. [Suspect]
     Active Substance: DONEPEZIL
     Dosage: REDUCED (DOSE UNKNOWN)
     Route: 048
     Dates: start: 20200826, end: 20200829

REACTIONS (6)
  - Constipation [Recovered/Resolved]
  - Disorganised speech [Recovered/Resolved]
  - Anxiety [Recovered/Resolved]
  - Affect lability [Recovered/Resolved]
  - Mydriasis [Recovered/Resolved]
  - Vision blurred [Recovered/Resolved]

NARRATIVE: CASE EVENT DATE: 20200825
